FAERS Safety Report 6169849-1 (Version None)
Quarter: 2009Q2

REPORT INFORMATION
  Report Type: 
  Country: None (occurrence: None)
  Receive Date: 20090428
  Receipt Date: 20090422
  Transmission Date: 20091009
  Serious: Yes (Other)
  Sender: FDA-Public Use
  Company Number: US-BAYER-200918793NA

PATIENT
  Age: 50 Year
  Sex: Female

DRUGS (1)
  1. AVELOX [Suspect]
     Indication: CELLULITIS

REACTIONS (1)
  - ANAPHYLACTIC REACTION [None]
